FAERS Safety Report 17846752 (Version 1)
Quarter: 2020Q2

REPORT INFORMATION
  Report Type: Spontaneous
  Country: US (occurrence: US)
  Receive Date: 20200601
  Receipt Date: 20200601
  Transmission Date: 20200714
  Serious: Yes (Other)
  Sender: FDA-Public Use
  Company Number: None

PATIENT
  Age: 60 Year
  Sex: Male
  Weight: 78.75 kg

DRUGS (9)
  1. DICLOFENAC SODIUM 75 MG [Concomitant]
     Active Substance: DICLOFENAC SODIUM
     Dates: start: 20200514
  2. OXYCODONE 5 MG [Concomitant]
     Active Substance: OXYCODONE
     Dates: start: 20200312
  3. CYCLOBENZAPRINE 10 MG [Concomitant]
     Active Substance: CYCLOBENZAPRINE
     Dates: start: 20200312
  4. GABAPENTIN 300 MG [Concomitant]
     Active Substance: GABAPENTIN
     Dates: start: 20191211, end: 20200514
  5. MAVYRET [Suspect]
     Active Substance: GLECAPREVIR\PIBRENTASVIR
     Indication: CHRONIC HEPATITIS C
     Route: 048
     Dates: start: 20200507, end: 20200526
  6. PREGABALIN 150 MG [Concomitant]
     Active Substance: PREGABALIN
     Dates: start: 20200514
  7. OMEPRAZOLE 40 MG [Concomitant]
     Active Substance: OMEPRAZOLE
     Dates: start: 20200107
  8. FAMOTIDINE 20 MG [Concomitant]
     Active Substance: FAMOTIDINE
     Dates: start: 20200504
  9. NICOTINE PATCH 14 MG/DAY [Concomitant]
     Dates: start: 20200316

REACTIONS (6)
  - Fatigue [None]
  - Asthenia [None]
  - Chromaturia [None]
  - Tremor [None]
  - Nausea [None]
  - Dizziness [None]

NARRATIVE: CASE EVENT DATE: 20200526
